FAERS Safety Report 9371477 (Version 3)
Quarter: 2013Q3

REPORT INFORMATION
  Report Type: Spontaneous
  Country: US (occurrence: US)
  Receive Date: 20130627
  Receipt Date: 20130726
  Transmission Date: 20140515
  Serious: Yes (Hospitalization)
  Sender: FDA-Public Use
  Company Number: US-009507513-1306USA007796

PATIENT
  Age: 46 Year
  Sex: Male
  Weight: 131.52 kg

DRUGS (2)
  1. REMERON [Suspect]
     Indication: DEPRESSION
     Route: 048
  2. PRISTIQ [Suspect]
     Indication: DEPRESSION
     Dosage: UNK
     Dates: start: 2006

REACTIONS (4)
  - Diabetic ulcer [Unknown]
  - Diabetic neuropathy [Unknown]
  - Toe amputation [Unknown]
  - Drug ineffective [Unknown]
